FAERS Safety Report 15128530 (Version 1)
Quarter: 2018Q3

REPORT INFORMATION
  Report Type: Spontaneous
  Country: US (occurrence: US)
  Receive Date: 20180711
  Receipt Date: 20180711
  Transmission Date: 20181010
  Serious: Yes (Other)
  Sender: FDA-Public Use
  Company Number: US-CONCORDIA PHARMACEUTICALS INC.-GSH201806-002189

PATIENT

DRUGS (4)
  1. BENZODIAZEPINES [Concomitant]
     Active Substance: BENZODIAZEPINE
     Dosage: A MINIMAL AMOUNT OF MILD BENZODIAZEPINES
  2. XANAX [Concomitant]
     Active Substance: ALPRAZOLAM
     Dosage: 1 0.25MG XANAX
  3. PARNATE [Suspect]
     Active Substance: TRANYLCYPROMINE SULFATE
  4. VALIUM [Concomitant]
     Active Substance: DIAZEPAM
     Dosage: 1 OR 2 5MG VALIUM.

REACTIONS (11)
  - Psychomotor skills impaired [Unknown]
  - Disorientation [Unknown]
  - Loss of consciousness [Unknown]
  - Vision blurred [Unknown]
  - Somnolence [Unknown]
  - Memory impairment [Unknown]
  - Syncope [Unknown]
  - Confusional state [Unknown]
  - Overdose [Unknown]
  - Hypotension [Unknown]
  - Off label use [Unknown]
